FAERS Safety Report 21916763 (Version 9)
Quarter: 2024Q2

REPORT INFORMATION
  Report Type: Spontaneous
  Country: US (occurrence: US)
  Receive Date: 20230126
  Receipt Date: 20240620
  Transmission Date: 20240716
  Serious: Yes (Other)
  Sender: FDA-Public Use
  Company Number: US-PFIZER INC-PV202300016729

PATIENT
  Age: 87 Year
  Sex: Male
  Weight: 72.562 kg

DRUGS (2)
  1. CIBINQO [Suspect]
     Active Substance: ABROCITINIB
     Indication: Pruritus
     Dosage: 100 MG, DAILY
     Route: 048
  2. CIBINQO [Suspect]
     Active Substance: ABROCITINIB
     Dosage: TAKE ONE TABLET BY MOUTH EVERY OTHER DAY
     Route: 048

REACTIONS (3)
  - Deafness [Not Recovered/Not Resolved]
  - Renal impairment [Unknown]
  - Off label use [Unknown]
